FAERS Safety Report 7918138-0 (Version None)
Quarter: 2011Q4

REPORT INFORMATION
  Report Type: 
  Country: None (occurrence: None)
  Receive Date: 20111116
  Receipt Date: 20111110
  Transmission Date: 20120403
  Serious: Yes (Hospitalization)
  Sender: FDA-Public Use
  Company Number: FR-GLAXOSMITHKLINE-B0732639A

PATIENT
  Sex: Female
  Weight: 54 kg

DRUGS (21)
  1. MAGNE B6 [Concomitant]
  2. LORAZEPAM [Concomitant]
     Dosage: 1MG AT NIGHT
  3. CHOP [Suspect]
     Indication: DIFFUSE LARGE B-CELL LYMPHOMA
     Route: 042
     Dates: start: 20110325
  4. CRESTOR [Concomitant]
     Indication: DYSLIPIDAEMIA
     Dosage: 10MG AT NIGHT
  5. ALLOPURINOL [Concomitant]
  6. PREDNISONE [Concomitant]
     Dosage: 60MG IN THE MORNING
  7. LANTUS [Concomitant]
     Indication: DIABETES MELLITUS
  8. XANAX [Concomitant]
  9. ACETAMINOPHEN [Concomitant]
  10. FORTIMEL [Concomitant]
  11. FRAXODI [Concomitant]
     Indication: PULMONARY EMBOLISM
  12. PREDNISONE TAB [Concomitant]
  13. MIANSERINE [Concomitant]
     Dosage: 10MG PER DAY
  14. RABEPRAZOLE SODIUM [Concomitant]
     Dosage: 20MG IN THE MORNING
  15. POTASSIUM CHLORIDE [Concomitant]
     Dates: end: 20110721
  16. INNOHEP [Concomitant]
     Dosage: .5ML PER DAY
     Route: 058
  17. NOVORAPID [Concomitant]
  18. MOUTHWASH [Concomitant]
  19. OFATUMUMAB [Suspect]
     Indication: DIFFUSE LARGE B-CELL LYMPHOMA
     Dosage: 1000MG PER DAY
     Route: 042
     Dates: start: 20110325
  20. POLYETHYLENE GLYCOL [Concomitant]
     Dosage: 2SAC PER DAY
  21. MYCOSTATIN [Concomitant]

REACTIONS (1)
  - LUNG DISORDER [None]
